FAERS Safety Report 19689898 (Version 3)
Quarter: 2021Q3

REPORT INFORMATION
  Report Type: Report from Study
  Country: None (occurrence: GR)
  Receive Date: 20210811
  Receipt Date: 20210902
  Transmission Date: 20211014
  Serious: Yes (Death, Hospitalization, Other)
  Sender: FDA-Public Use
  Company Number: GR-ABBVIE-21K-066-4031151-00

PATIENT
  Age: 69 Year
  Sex: Female
  Weight: 58 kg

DRUGS (6)
  1. DUODOPA [Suspect]
     Active Substance: CARBIDOPA\LEVODOPA
     Indication: PARKINSON^S DISEASE
     Dosage: CONTINUOUS RATE: 5.8 ML/H; EXTRA DOSE: 2.7 ML
     Route: 050
     Dates: start: 20190531
  2. BINOSTO [Concomitant]
     Active Substance: ALENDRONATE SODIUM
     Indication: PRODUCT USED FOR UNKNOWN INDICATION
     Route: 048
  3. DUODOPA [Suspect]
     Active Substance: CARBIDOPA\LEVODOPA
  4. THYROXINE (T4) [Concomitant]
     Indication: HYPOTHYROIDISM
     Route: 048
  5. VITAMIN D [Concomitant]
     Active Substance: VITAMIN D NOS
     Indication: PRODUCT USED FOR UNKNOWN INDICATION
     Route: 048
  6. APO?GO [Concomitant]
     Active Substance: APOMORPHINE
     Indication: PRODUCT USED FOR UNKNOWN INDICATION
     Route: 050

REACTIONS (7)
  - Coma [Unknown]
  - Faecaloma [Unknown]
  - Heat stroke [Unknown]
  - Abdominal distension [Recovered/Resolved]
  - Multiple organ dysfunction syndrome [Fatal]
  - Altered state of consciousness [Unknown]
  - Dissociation [Not Recovered/Not Resolved]

NARRATIVE: CASE EVENT DATE: 20210813
